FAERS Safety Report 7032117-X (Version None)
Quarter: 2010Q4

REPORT INFORMATION
  Report Type: 
  Country: None (occurrence: None)
  Receive Date: 20101007
  Receipt Date: 20091109
  Transmission Date: 20110411
  Serious: Yes (Hospitalization, Other)
  Sender: FDA-Public Use
  Company Number: BE-BRISTOL-MYERS SQUIBB COMPANY-14852206

PATIENT
  Age: 57 Year

DRUGS (4)
  1. CETUXIMAB [Suspect]
     Indication: COLON CANCER
     Dosage: RECENT DOSE: 30SEP09
     Route: 042
     Dates: start: 20090916
  2. OXALIPLATIN [Suspect]
     Indication: COLON CANCER
     Dosage: RECENT DOSE: 30SEP09
     Route: 042
     Dates: start: 20090916
  3. FLUOROURACIL [Suspect]
     Indication: COLON CANCER
     Dosage: RECENT DOSE: 02OCT09
     Route: 042
     Dates: start: 20090916
  4. FOLINIC ACID [Suspect]
     Indication: COLON CANCER
     Dosage: RECENT DOSE: 01OCT09
     Route: 042
     Dates: start: 20090916

REACTIONS (3)
  - DYSPNOEA [None]
  - PULMONARY EMBOLISM [None]
  - VENOUS THROMBOSIS [None]
